FAERS Safety Report 9692665 (Version 1)
Quarter: 2013Q4

REPORT INFORMATION
  Report Type: Spontaneous
  Country: BR (occurrence: BR)
  Receive Date: 20131118
  Receipt Date: 20131118
  Transmission Date: 20140711
  Serious: Yes (Other)
  Sender: FDA-Public Use
  Company Number: PHHY2013BR129577

PATIENT
  Age: 45 Year
  Sex: Male

DRUGS (1)
  1. IMATINIB [Suspect]
     Dosage: 400 MG, PER DAY

REACTIONS (3)
  - Bone marrow oedema [Recovered/Resolved]
  - Pain in extremity [Recovered/Resolved]
  - Gait disturbance [Recovered/Resolved]
